FAERS Safety Report 23502238 (Version 3)
Quarter: 2024Q2

REPORT INFORMATION
  Report Type: Spontaneous
  Country: US (occurrence: US)
  Receive Date: 20240208
  Receipt Date: 20240403
  Transmission Date: 20240715
  Serious: Yes (Other)
  Sender: FDA-Public Use
  Company Number: US-BRISTOL-MYERS SQUIBB COMPANY-2024-019871

PATIENT
  Age: 81 Year
  Sex: Male

DRUGS (2)
  1. LENALIDOMIDE [Suspect]
     Active Substance: LENALIDOMIDE
     Indication: Diffuse large B-cell lymphoma
     Dosage: TAKE 1 CAPSULE BY MOUTH ON DAYS 1-21 OF A 28 DAY CYCLE AS DIRECTED
     Route: 048
  2. LENALIDOMIDE [Suspect]
     Active Substance: LENALIDOMIDE
     Dosage: TOME 1 C?PSULA POR V?A ORAL LOS D?AS 1 A 21 DE UN CICLO DE 28 D?AS
     Route: 048
     Dates: start: 20240108

REACTIONS (10)
  - Fatigue [Not Recovered/Not Resolved]
  - Tremor [Not Recovered/Not Resolved]
  - Asthenia [Not Recovered/Not Resolved]
  - Nausea [Not Recovered/Not Resolved]
  - Constipation [Not Recovered/Not Resolved]
  - Immunodeficiency [Unknown]
  - Off label use [Unknown]
  - White blood cell count decreased [Unknown]
  - Product dose omission in error [Unknown]
  - Localised infection [Recovering/Resolving]
